FAERS Safety Report 22027709 (Version 1)
Quarter: 2023Q1

REPORT INFORMATION
  Report Type: Spontaneous
  Country: US (occurrence: US)
  Receive Date: 20230223
  Receipt Date: 20230223
  Transmission Date: 20230418
  Serious: Yes (Other)
  Sender: FDA-Public Use
  Company Number: US-002147023-NVSC2023US036879

PATIENT
  Age: 50 Year

DRUGS (1)
  1. PROMACTA [Suspect]
     Active Substance: ELTROMBOPAG OLAMINE
     Indication: Immune thrombocytopenia
     Dosage: 50 MG, QD
     Route: 048
     Dates: start: 20230101, end: 20230101

REACTIONS (4)
  - Thrombotic thrombocytopenic purpura [Unknown]
  - Thrombotic microangiopathy [Unknown]
  - Renal failure [Unknown]
  - Renal embolism [Unknown]

NARRATIVE: CASE EVENT DATE: 20230101
